FAERS Safety Report 15472451 (Version 2)
Quarter: 2018Q4

REPORT INFORMATION
  Report Type: Report from Study
  Country: AR (occurrence: AR)
  Receive Date: 20181008
  Receipt Date: 20181009
  Transmission Date: 20190205
  Serious: Yes (Death, Hospitalization)
  Sender: FDA-Public Use
  Company Number: AR-ACTELION-A-CH2018-179886

PATIENT
  Age: 26 Year
  Sex: Male
  Weight: 66 kg

DRUGS (1)
  1. VELETRI [Suspect]
     Active Substance: EPOPROSTENOL
     Indication: PULMONARY ARTERIAL HYPERTENSION
     Dosage: 1.5 MG, QD
     Route: 042
     Dates: start: 201612, end: 201810

REACTIONS (3)
  - Lung transplant [Unknown]
  - Cardiac arrest [Fatal]
  - Renal transplant [Unknown]

NARRATIVE: CASE EVENT DATE: 20181002
